FAERS Safety Report 6429732-0 (Version None)
Quarter: 2009Q4

REPORT INFORMATION
  Report Type: 
  Country: None (occurrence: None)
  Receive Date: 20091103
  Receipt Date: 20091019
  Transmission Date: 20100525
  Serious: Yes (Hospitalization)
  Sender: FDA-Public Use
  Company Number: 02100-JPN-06-0627

PATIENT
  Age: 76 Year
  Sex: Female
  Weight: 60 kg

DRUGS (4)
  1. PLETAL [Suspect]
     Indication: CEREBRAL INFARCTION
     Dosage: 100 MG, BID ORAL
     Route: 048
     Dates: start: 20060321, end: 20061214
  2. DIOVAN [Concomitant]
  3. ADOFEED (FLURBIPROFEN) [Concomitant]
  4. METHYCOOL (MECOBALAMIN) [Concomitant]

REACTIONS (3)
  - HIATUS HERNIA [None]
  - HYPERTROPHIC CARDIOMYOPATHY [None]
  - MYOCARDIAL ISCHAEMIA [None]
